FAERS Safety Report 9608187 (Version 2)
Quarter: 2013Q4

REPORT INFORMATION
  Report Type: Spontaneous
  Country: US (occurrence: US)
  Receive Date: 20131009
  Receipt Date: 20131009
  Transmission Date: 20140711
  Serious: No
  Sender: FDA-Public Use
  Company Number: US-PURDUE-USA-2012-0093956

PATIENT
  Age: 54 Year
  Sex: Male
  Weight: 83.45 kg

DRUGS (7)
  1. BUTRANS [Suspect]
     Indication: PAIN
     Dosage: 20 MCG, 1/WEEK
     Route: 062
     Dates: start: 201202
  2. VICODIN [Concomitant]
     Indication: PAIN
     Dosage: 2 TABLET, PRN
     Route: 048
  3. DIOVAN HCT [Concomitant]
     Indication: BLOOD PRESSURE
     Dosage: 1 TABLET, DAILY
     Route: 048
  4. OMEPRAZOLE [Concomitant]
     Indication: GASTROOESOPHAGEAL REFLUX DISEASE
     Dosage: 20 MG, DAILY
     Route: 048
  5. TIZANIDINE HYDROCHLORIDE [Concomitant]
     Indication: PRODUCT USED FOR UNKNOWN INDICATION
     Dosage: 4 MG, TID
     Route: 048
  6. VITAMIN K                          /06858101/ [Concomitant]
     Indication: PRODUCT USED FOR UNKNOWN INDICATION
     Dosage: 595 MG, DAILY
     Route: 048
  7. GLUCONATE SODIUM [Concomitant]
     Indication: PRODUCT USED FOR UNKNOWN INDICATION

REACTIONS (3)
  - Libido increased [Not Recovered/Not Resolved]
  - Drug effect increased [Unknown]
  - Drug effect decreased [Unknown]
